FAERS Safety Report 15170742 (Version 1)
Quarter: 2018Q3

REPORT INFORMATION
  Report Type: Spontaneous
  Country: IT (occurrence: IT)
  Receive Date: 20180720
  Receipt Date: 20180720
  Transmission Date: 20181010
  Serious: Yes (Hospitalization, Other)
  Sender: FDA-Public Use
  Company Number: IT-WEST-WARD PHARMACEUTICALS CORP.-IT-H14001-18-05809

PATIENT
  Age: 69 Year
  Sex: Female
  Weight: 57 kg

DRUGS (20)
  1. FLUOROURACIL. [Suspect]
     Active Substance: FLUOROURACIL
     Indication: COLORECTAL CANCER METASTATIC
     Dosage: 3000 MG,QCY ; CYCLICAL
     Route: 041
     Dates: start: 20150609
  2. AFLIBERCEPT [Suspect]
     Active Substance: AFLIBERCEPT
     Indication: COLORECTAL CANCER METASTATIC
     Dosage: 244 MG,QCY ; CYCLICAL
     Route: 041
     Dates: start: 20150609, end: 20150609
  3. LORAZEPAM. [Concomitant]
     Active Substance: LORAZEPAM
     Indication: PRODUCT USED FOR UNKNOWN INDICATION
     Dosage: UNK UNK,UNK ()
     Route: 065
  4. FOLINIC ACID [Suspect]
     Active Substance: LEUCOVORIN
     Indication: COLORECTAL CANCER METASTATIC
     Dosage: 240 MG,QCY ; CYCLICAL
     Route: 041
     Dates: start: 20150812, end: 20150812
  5. IRINOTECAN [Suspect]
     Active Substance: IRINOTECAN
     Indication: COLORECTAL CANCER METASTATIC
     Dosage: 230 MG,QCY ; CYCLICAL
     Route: 041
     Dates: start: 20150609, end: 20150609
  6. FOLINIC ACID [Suspect]
     Active Substance: LEUCOVORIN
     Indication: COLORECTAL CANCER METASTATIC
     Dosage: 250 MG,QCY ; CYCLICAL
     Route: 041
     Dates: start: 20150609, end: 20150609
  7. FLUOROURACIL. [Suspect]
     Active Substance: FLUOROURACIL
     Indication: COLORECTAL CANCER METASTATIC
     Dosage: 500 MG,QCY ; CYCLICAL
     Route: 040
     Dates: start: 20150609, end: 20150609
  8. METOCLOPRAMIDE. [Concomitant]
     Active Substance: METOCLOPRAMIDE
     Indication: PROPHYLAXIS
     Dosage: UNK UNK,UNK ()
     Route: 065
  9. VENLAFAXINE [Concomitant]
     Active Substance: VENLAFAXINE HYDROCHLORIDE
     Indication: PROPHYLAXIS
     Dosage: UNK UNK,UNK ()
     Route: 065
  10. IRINOTECAN [Suspect]
     Active Substance: IRINOTECAN
     Indication: COLORECTAL CANCER METASTATIC
     Dosage: 220 MG,QCY ; CYCLICAL
     Route: 041
     Dates: start: 20150812, end: 20150812
  11. AFLIBERCEPT [Suspect]
     Active Substance: AFLIBERCEPT
     Indication: COLORECTAL CANCER METASTATIC
     Dosage: 228 MG,QCY ; CYCLICAL
     Route: 041
     Dates: start: 20150812, end: 20150812
  12. LEVOTHYROXINE. [Concomitant]
     Active Substance: LEVOTHYROXINE
     Indication: PRODUCT USED FOR UNKNOWN INDICATION
     Dosage: UNK UNK,UNK ()
     Route: 065
  13. SEACOR [Concomitant]
     Active Substance: OMEGA-3 FATTY ACIDS
     Indication: PROPHYLAXIS
     Dosage: UNK UNK,UNK ()
     Route: 065
  14. PANTOPRAZOLE [Concomitant]
     Active Substance: PANTOPRAZOLE
     Indication: PRODUCT USED FOR UNKNOWN INDICATION
     Dosage: UNK UNK,UNK ()
     Route: 065
  15. FLUOROURACIL. [Suspect]
     Active Substance: FLUOROURACIL
     Indication: COLORECTAL CANCER METASTATIC
     Dosage: 480 MG,QCY ; CYCLICAL
     Route: 040
     Dates: start: 20150812, end: 20150812
  16. FLUOROURACIL. [Suspect]
     Active Substance: FLUOROURACIL
     Indication: COLORECTAL CANCER METASTATIC
     Dosage: 2850 MG,QCY ; CYCLICAL
     Route: 041
     Dates: start: 20150812
  17. DEXAMETHASONE. [Concomitant]
     Active Substance: DEXAMETHASONE
     Indication: PROPHYLAXIS
     Dosage: UNK UNK,UNK ()
     Route: 065
  18. DEXAMETHASONE. [Concomitant]
     Active Substance: DEXAMETHASONE
     Indication: PROPHYLAXIS
     Dosage: 4 DF,UNK
     Route: 042
  19. ATROPINE. [Concomitant]
     Active Substance: ATROPINE
     Indication: PROPHYLAXIS
     Dosage: 1 MG,UNK
     Route: 042
  20. ALOXI [Concomitant]
     Active Substance: PALONOSETRON HYDROCHLORIDE
     Indication: PROPHYLAXIS
     Dosage: 250 UG,UNK
     Route: 042

REACTIONS (4)
  - Pyrexia [Recovered/Resolved]
  - Urinary tract infection [Recovered/Resolved]
  - Pyelonephritis [Recovered/Resolved]
  - Haemorrhoids [Recovered/Resolved]

NARRATIVE: CASE EVENT DATE: 20150815
